FAERS Safety Report 5066412-0 (Version None)
Quarter: 2006Q3

REPORT INFORMATION
  Report Type: 
  Country: None (occurrence: None)
  Receive Date: 20060714
  Receipt Date: 20060519
  Transmission Date: 20061208
  Serious: No
  Sender: FDA-Public Use
  Company Number: 2006SP002123

PATIENT
  Age: 63 Year
  Sex: Female
  Weight: 70.3075 kg

DRUGS (5)
  1. LUNESTA [Suspect]
     Indication: INSOMNIA
     Dosage: 2 MG HS ORAL ; 4 MG 1X ORAL
     Route: 048
     Dates: start: 20060518, end: 20060518
  2. LUNESTA [Suspect]
     Indication: INSOMNIA
     Dosage: 2 MG HS ORAL ; 4 MG 1X ORAL
     Route: 048
     Dates: start: 20060401
  3. ANTIHYPERTENSIVES [Concomitant]
  4. SERUMLIPIDREDUCING AGENTS [Concomitant]
  5. AMBIEN [Concomitant]

REACTIONS (1)
  - INITIAL INSOMNIA [None]
